FAERS Safety Report 21839808 (Version 3)
Quarter: 2023Q1

REPORT INFORMATION
  Report Type: Report from Study
  Country: FR (occurrence: FR)
  Receive Date: 20230109
  Receipt Date: 20230222
  Transmission Date: 20230418
  Serious: Yes (Other)
  Sender: FDA-Public Use
  Company Number: FR-002147023-NVSC2022FR287924

PATIENT
  Age: 87 Year
  Sex: Male
  Weight: 67 kg

DRUGS (5)
  1. PLUVICTO [Suspect]
     Active Substance: LUTETIUM LU-177 VIPIVOTIDE TETRAXETAN
     Indication: Prostate cancer
     Dosage: 7.029 GBQ ONCE
     Route: 042
     Dates: start: 20220902, end: 20220902
  2. PLUVICTO [Suspect]
     Active Substance: LUTETIUM LU-177 VIPIVOTIDE TETRAXETAN
     Dosage: 7.182 GBQ ONCE
     Route: 042
     Dates: start: 20221012
  3. ZOLADEX [Concomitant]
     Active Substance: GOSERELIN ACETATE
     Indication: Product used for unknown indication
     Dosage: QUART EARLY (LAST NOV 2022)
     Route: 065
     Dates: end: 202208
  4. LOVENOX [Concomitant]
     Active Substance: ENOXAPARIN SODIUM
     Indication: Pelvic fracture
     Dosage: 0.4 ML
     Route: 065
     Dates: start: 20221026, end: 20221130
  5. ACETAMINOPHEN [Concomitant]
     Active Substance: ACETAMINOPHEN
     Indication: Pelvic fracture
     Dosage: 1 G 1/1/1 IF NEED
     Route: 065
     Dates: start: 20221026, end: 20221130

REACTIONS (2)
  - Inappropriate antidiuretic hormone secretion [Unknown]
  - Hyponatraemia [Unknown]
